FAERS Safety Report 9793112 (Version 1)
Quarter: 2013Q4

REPORT INFORMATION
  Report Type: Spontaneous
  Country: US (occurrence: None)
  Receive Date: 20131231
  Receipt Date: 20131231
  Transmission Date: 20140711
  Serious: Yes (Hospitalization)
  Sender: FDA-Public Use
  Company Number: None

PATIENT
  Age: 54 Year
  Sex: Male
  Weight: 110.5 kg

DRUGS (2)
  1. MORPHINE [Suspect]
     Indication: PAIN
     Route: 042
     Dates: start: 20130821, end: 20130824
  2. MORPHINE [Suspect]
     Indication: HEPATITIS C
     Route: 042
     Dates: start: 20130821, end: 20130824

REACTIONS (2)
  - Respiratory failure [None]
  - Nausea [None]
